FAERS Safety Report 20364999 (Version 3)
Quarter: 2022Q1

REPORT INFORMATION
  Report Type: Report from Study
  Country: CN (occurrence: None)
  Receive Date: 20220122
  Receipt Date: 20220311
  Transmission Date: 20220423
  Serious: Yes (Hospitalization)
  Sender: FDA-Public Use
  Company Number: CN-ROCHE-3006802

PATIENT
  Age: 66 Year
  Sex: Male
  Weight: 68 kg

DRUGS (17)
  1. ATEZOLIZUMAB [Suspect]
     Active Substance: ATEZOLIZUMAB
     Indication: Non-small cell lung cancer stage IV
     Dosage: ON 11/DEC/2020 AND 23/SEP/2021, RECEIVED MOST RECENT DOSE OF BLINDED ATEZOLIZUMAB BEFORE EVENT.
     Route: 041
     Dates: start: 20201120
  2. BEVACIZUMAB [Suspect]
     Active Substance: BEVACIZUMAB
     Indication: Non-small cell lung cancer stage IV
     Dosage: ON 18/DEC/2020 AND 15/DEC/2021, RECEIVED MOST RECENT DOSE OF BEVACIZUMAB BEFORE AE AND SAE.
     Route: 042
     Dates: start: 20201120
  3. CARBOPLATIN [Suspect]
     Active Substance: CARBOPLATIN
     Indication: Non-small cell lung cancer stage IV
     Dosage: ON 11/DEC/2020 AND 22/JAN/2021, RECEIVED MOST RECENT DOSE OF CARBOPLATIN (517 MG AND 460 MG) BEFORE
     Route: 042
     Dates: start: 20201120
  4. PEMETREXED [Suspect]
     Active Substance: PEMETREXED
     Indication: Non-small cell lung cancer stage IV
     Dosage: ON 11/DEC/2020 AND 15/DEC/2021, RECEIVED MOST RECENT DOSE OF PEMETREXED (885 MG AND 870 MG) BEFORE A
     Route: 042
     Dates: start: 20201120
  5. FOLIC ACID [Concomitant]
     Active Substance: FOLIC ACID
  6. DEXAMETHASONE [Concomitant]
     Active Substance: DEXAMETHASONE
  7. AMLODIPINE BESYLATE [Concomitant]
     Active Substance: AMLODIPINE BESYLATE
  8. CAFFEIC ACID [Concomitant]
     Active Substance: CAFFEIC ACID
  9. LEUCOGEN (CHINA) [Concomitant]
  10. ZOMETA [Concomitant]
     Active Substance: ZOLEDRONIC ACID
  11. ZOLEDRONIC ACID [Concomitant]
     Active Substance: ZOLEDRONIC ACID
  12. OMEPRAZOLE SODIUM [Concomitant]
     Active Substance: OMEPRAZOLE SODIUM
  13. DIISOPROPYLAMMONIUM DICHLOROACETATE [Concomitant]
     Active Substance: DIISOPROPYLAMMONIUM DICHLOROACETATE
  14. PALONOSETRON HYDROCHLORIDE [Concomitant]
     Active Substance: PALONOSETRON HYDROCHLORIDE
  15. FUROSEMIDE [Concomitant]
     Active Substance: FUROSEMIDE
  16. TROPISETRON HYDROCHLORIDE AND SODIUM CHLORIDE [Concomitant]
  17. ACETYLCYSTEINE [Concomitant]
     Active Substance: ACETYLCYSTEINE

REACTIONS (2)
  - Anaemia [Not Recovered/Not Resolved]
  - Acute myocardial infarction [Recovered/Resolved]

NARRATIVE: CASE EVENT DATE: 20201218
